FAERS Safety Report 6249146-6 (Version None)
Quarter: 2009Q2

REPORT INFORMATION
  Report Type: 
  Country: None (occurrence: None)
  Receive Date: 20090624
  Receipt Date: 20090624
  Transmission Date: 20091009
  Serious: No
  Sender: FDA-Public Use
  Company Number: None

PATIENT
  Sex: Male
  Weight: 81.6475 kg

DRUGS (1)
  1. AZITHROMYCIN [Suspect]
     Indication: INFLUENZA
     Dosage: 2 TO START THEN 1 PER DAY - DAILY - PO
     Route: 048
     Dates: start: 20090620, end: 20090622

REACTIONS (3)
  - NODULE [None]
  - STOMATITIS [None]
  - THROAT TIGHTNESS [None]
